FAERS Safety Report 24108427 (Version 1)
Quarter: 2024Q3

REPORT INFORMATION
  Report Type: Report from Study
  Country: CA (occurrence: CA)
  Receive Date: 20240718
  Receipt Date: 20240718
  Transmission Date: 20241017
  Serious: Yes (Other)
  Sender: ABBVIE
  Company Number: CA-ABBVIE-5839520

PATIENT
  Sex: Female

DRUGS (1)
  1. RINVOQ [Suspect]
     Active Substance: UPADACITINIB
     Indication: Seronegative arthritis
     Dosage: FORM STRENGTH: 15 MILLIGRAM
     Route: 048
     Dates: start: 20210612

REACTIONS (5)
  - Spinal fusion surgery [Unknown]
  - Arthritis [Unknown]
  - Osteoarthritis [Unknown]
  - Spinal cord compression [Unknown]
  - Scoliosis [Unknown]
